FAERS Safety Report 8555011-1 (Version None)
Quarter: 2012Q3

REPORT INFORMATION
  Report Type: 
  Country: None (occurrence: None)
  Receive Date: 20120731
  Receipt Date: 20120726
  Transmission Date: 20120928
  Serious: Yes (Hospitalization)
  Sender: FDA-Public Use
  Company Number: CA-ABBOTT-12P-028-0960850-00

PATIENT
  Sex: Male

DRUGS (2)
  1. COUMADIN [Concomitant]
     Indication: PRODUCT USED FOR UNKNOWN INDICATION
     Dosage: 1 IN 1 DAY, 2.5 MG AND 3.5 MG ALTERNATING DOSES
  2. LUPRON DEPOT [Suspect]
     Indication: PROSTATE CANCER
     Dates: start: 20060727

REACTIONS (3)
  - GAIT DISTURBANCE [None]
  - CONTUSION [None]
  - SWELLING [None]
